FAERS Safety Report 7157574-X (Version None)
Quarter: 2010Q4

REPORT INFORMATION
  Report Type: 
  Country: None (occurrence: None)
  Receive Date: 20101214
  Receipt Date: 20100224
  Transmission Date: 20110411
  Serious: No
  Sender: FDA-Public Use
  Company Number: US-ASTRAZENECA-2010SE08218

PATIENT
  Age: 50 Year
  Sex: Male

DRUGS (5)
  1. CRESTOR [Suspect]
     Route: 048
     Dates: start: 20091201
  2. OMEPRAZOLE [Concomitant]
  3. ALIGN PROBIOTIC [Concomitant]
  4. FISH OIL [Concomitant]
  5. ZERTEC [Concomitant]
     Indication: MULTIPLE ALLERGIES

REACTIONS (5)
  - ASTHENIA [None]
  - DIZZINESS [None]
  - DYSPEPSIA [None]
  - JOINT CREPITATION [None]
  - MYALGIA [None]
